FAERS Safety Report 12382995 (Version 2)
Quarter: 2016Q3

REPORT INFORMATION
  Report Type: Report from Study
  Country: GB (occurrence: GB)
  Receive Date: 20160518
  Receipt Date: 20160720
  Transmission Date: 20161109
  Serious: No
  Sender: FDA-Public Use
  Company Number: GB-MYLANLABS-2016M1020644

PATIENT

DRUGS (6)
  1. SERETIDE [Concomitant]
     Active Substance: FLUTICASONE PROPIONATE\SALMETEROL XINAFOATE
     Dosage: TWO PUFFS TWICE DAILY BY A SPACER
     Route: 055
  2. MODAFINIL. [Suspect]
     Active Substance: MODAFINIL
     Indication: RESPIRATORY FAILURE
     Dosage: 200 MG EVERY MORNING
     Route: 048
  3. TIOTROPIUM BROMIDE [Concomitant]
     Active Substance: TIOTROPIUM BROMIDE
     Dosage: 18 MCG EVERY MORNING
     Route: 065
  4. SALBUTAMOL [Concomitant]
     Active Substance: ALBUTEROL
     Dosage: 200 MCG AS REQUIRED
     Route: 055
  5. FUROSEMIDE. [Concomitant]
     Active Substance: FUROSEMIDE
     Route: 065
  6. CARBOCISTEINE [Concomitant]
     Active Substance: CARBOCYSTEINE
     Route: 065

REACTIONS (2)
  - Off label use [Recovering/Resolving]
  - No adverse event [Unknown]
